FAERS Safety Report 7093210-9 (Version None)
Quarter: 2010Q4

REPORT INFORMATION
  Report Type: 
  Country: None (occurrence: None)
  Receive Date: 20101110
  Receipt Date: 20101108
  Transmission Date: 20110411
  Serious: Yes (Hospitalization)
  Sender: FDA-Public Use
  Company Number: JP-BAYER-201013291BYL

PATIENT
  Age: 82 Year
  Sex: Male
  Weight: 52 kg

DRUGS (25)
  1. NEXAVAR [Suspect]
     Indication: HEPATIC NEOPLASM MALIGNANT
     Dosage: UNIT DOSE: 200 MG
     Route: 048
     Dates: start: 20100301
  2. NEXAVAR [Suspect]
     Dosage: UNIT DOSE: 200 MG
     Route: 048
     Dates: start: 20100406, end: 20100411
  3. NEXAVAR [Suspect]
     Dosage: UNIT DOSE: 200 MG
     Route: 048
     Dates: start: 20100512, end: 20100624
  4. NEXAVAR [Suspect]
     Dosage: UNIT DOSE: 200 MG
     Route: 048
     Dates: start: 20100429, end: 20100511
  5. LASIX [Concomitant]
     Route: 048
     Dates: start: 20050811, end: 20100629
  6. AZELASTINE HCL [Concomitant]
     Route: 048
     Dates: start: 20050811
  7. ITOROL [Concomitant]
     Route: 048
     Dates: start: 20050721
  8. TANATRIL [Concomitant]
     Route: 048
     Dates: start: 20050811
  9. GLUCOBAY [Concomitant]
     Route: 048
     Dates: start: 20090116, end: 20100624
  10. WARFARIN SODIUM [Concomitant]
     Route: 048
     Dates: start: 20060904, end: 20100628
  11. GLYBURIDE [Concomitant]
     Route: 048
     Dates: start: 20061225, end: 20100624
  12. VASOLAN [Concomitant]
     Route: 048
     Dates: start: 20070416
  13. FRANDOL S [Concomitant]
     Route: 058
     Dates: start: 20070305
  14. SELARA [Concomitant]
     Route: 048
     Dates: start: 20081114
  15. TAMSULOSIN HCL [Concomitant]
     Route: 048
     Dates: start: 20070530
  16. TAKEPRON [Concomitant]
     Route: 048
     Dates: start: 20061018
  17. URSO 250 [Concomitant]
     Route: 048
     Dates: start: 19980101, end: 20100702
  18. MAGLAX [Concomitant]
     Route: 048
     Dates: start: 20081216
  19. LENDORMIN [Concomitant]
     Route: 048
     Dates: start: 20060904
  20. NITROPEN [Concomitant]
     Route: 048
     Dates: start: 20090813
  21. UREPEARL L [Concomitant]
     Route: 061
     Dates: start: 20100223
  22. TALION [Concomitant]
     Route: 048
     Dates: start: 20100305, end: 20100309
  23. RESTAMIN [Concomitant]
     Route: 061
     Dates: start: 20100312
  24. ALLEGRA [Concomitant]
     Route: 048
     Dates: start: 20100412, end: 20100702
  25. GLUCOSE [Concomitant]
     Dosage: UNIT DOSE: 5 %
     Route: 042
     Dates: start: 20100625, end: 20100625

REACTIONS (10)
  - C-REACTIVE PROTEIN INCREASED [None]
  - CHEST DISCOMFORT [None]
  - DECREASED APPETITE [None]
  - DEMENTIA [None]
  - DYSPNOEA [None]
  - ECZEMA [None]
  - EPISTAXIS [None]
  - MALAISE [None]
  - NAUSEA [None]
  - PRURITUS [None]
